FAERS Safety Report 16019351 (Version 2)
Quarter: 2019Q1

REPORT INFORMATION
  Report Type: Report from Study
  Country: MX (occurrence: MX)
  Receive Date: 20190228
  Receipt Date: 20190308
  Transmission Date: 20190418
  Serious: Yes (Other)
  Sender: FDA-Public Use
  Company Number: PHHY2019MX046155

PATIENT
  Sex: Male

DRUGS (4)
  1. COSENTYX [Suspect]
     Active Substance: SECUKINUMAB
     Indication: ANKYLOSING SPONDYLITIS
     Dosage: 2 DF (150 MG), QMO
     Route: 058
     Dates: start: 201808
  2. COSENTYX [Suspect]
     Active Substance: SECUKINUMAB
     Dosage: UNK (TWICE MONTHLTY)
     Route: 058
     Dates: end: 20190215
  3. PREDNISONE. [Concomitant]
     Active Substance: PREDNISONE
     Indication: PRODUCT USED FOR UNKNOWN INDICATION
     Route: 048
  4. INDOMETACINE [Concomitant]
     Active Substance: INDOMETHACIN
     Indication: NECK PAIN
     Dosage: 1 DF, QD
     Route: 048

REACTIONS (4)
  - Uveitis [Unknown]
  - Drug ineffective [Unknown]
  - Pain [Unknown]
  - Inappropriate schedule of product administration [Unknown]
